FAERS Safety Report 5597780-9 (Version None)
Quarter: 2007Q4

REPORT INFORMATION
  Report Type: 
  Country: None (occurrence: None)
  Receive Date: 20071221
  Receipt Date: 20071022
  Transmission Date: 20080405
  Serious: No
  Sender: FDA-Public Use
  Company Number: SPV1-2007-04659

PATIENT
  Age: 23 Year
  Sex: Female
  Weight: 52.2 kg

DRUGS (6)
  1. VYVANSE [Suspect]
     Indication: ATTENTION DEFICIT/HYPERACTIVITY DISORDER
     Dosage: 30 MG, 3X/DAY:TID, ORAL ; 50 MG, 3X/DAY:TID, ORAL ; 30 MG, 3X/DAY:TID, ORAL
     Route: 048
     Dates: start: 20070901, end: 20070901
  2. VYVANSE [Suspect]
     Indication: ATTENTION DEFICIT/HYPERACTIVITY DISORDER
     Dosage: 30 MG, 3X/DAY:TID, ORAL ; 50 MG, 3X/DAY:TID, ORAL ; 30 MG, 3X/DAY:TID, ORAL
     Route: 048
     Dates: start: 20070901, end: 20071021
  3. VYVANSE [Suspect]
     Indication: ATTENTION DEFICIT/HYPERACTIVITY DISORDER
     Dosage: 30 MG, 3X/DAY:TID, ORAL ; 50 MG, 3X/DAY:TID, ORAL ; 30 MG, 3X/DAY:TID, ORAL
     Route: 048
     Dates: start: 20071022
  4. LUNESTA [Concomitant]
  5. NIRAVAM (ALPRAZOLAM) [Concomitant]
  6. DIAZEPAM [Concomitant]

REACTIONS (5)
  - DRUG INEFFECTIVE [None]
  - MOTOR DYSFUNCTION [None]
  - NAUSEA [None]
  - OFF LABEL USE [None]
  - OVERDOSE [None]
